FAERS Safety Report 4936212-8 (Version None)
Quarter: 2006Q1

REPORT INFORMATION
  Report Type: 
  Country: None (occurrence: None)
  Receive Date: 20060127
  Receipt Date: 20051010
  Transmission Date: 20060701
  Serious: Yes (Other)
  Sender: FDA-Public Use
  Company Number: 2005141718

PATIENT
  Sex: Male

DRUGS (3)
  1. LYRICA [Suspect]
     Indication: ILL-DEFINED DISORDER
     Dosage: 150 MG (50 MG, 3 IN 1 D), ORAL
     Route: 048
     Dates: start: 20050101
  2. HYDROCODONE BITARTRATE [Suspect]
     Indication: ILL-DEFINED DISORDER
     Dosage: (10 MG)
  3. DIOVAN [Suspect]
     Indication: ILL-DEFINED DISORDER

REACTIONS (1)
  - MUSCLE TWITCHING [None]
